FAERS Safety Report 9137650 (Version 1)
Quarter: 2013Q1

REPORT INFORMATION
  Report Type: Spontaneous
  Country: FR (occurrence: FR)
  Receive Date: 20130304
  Receipt Date: 20130304
  Transmission Date: 20140127
  Serious: Yes (Life-Threatening, Hospitalization)
  Sender: FDA-Public Use
  Company Number: FR-ASTRAZENECA-2013SE13079

PATIENT
  Age: 26681 Day
  Sex: Female

DRUGS (12)
  1. INEXIUM [Suspect]
     Route: 048
  2. TAHOR [Interacting]
  3. TRACLEER [Interacting]
     Route: 048
     Dates: start: 20130118
  4. XARELTO [Suspect]
     Route: 048
     Dates: start: 201301, end: 20130123
  5. PREVISCAN [Concomitant]
  6. TEMERIT [Concomitant]
  7. KENZEN [Concomitant]
  8. ALDACTONE [Concomitant]
  9. LASILIX [Concomitant]
  10. COLCHIMAX [Concomitant]
  11. LEXOMIL [Concomitant]
  12. DAFALGAN [Concomitant]

REACTIONS (4)
  - Drug interaction [Recovered/Resolved]
  - Gastrointestinal haemorrhage [Recovered/Resolved]
  - Anaemia [Recovered/Resolved]
  - Right ventricular failure [Unknown]
